FAERS Safety Report 9531435 (Version 1)
Quarter: 2013Q3

REPORT INFORMATION
  Report Type: Spontaneous
  Country: US (occurrence: None)
  Receive Date: 20130916
  Receipt Date: 20130916
  Transmission Date: 20140515
  Serious: Yes (Other)
  Sender: FDA-Public Use
  Company Number: None

PATIENT
  Age: 22 Year
  Sex: Female
  Weight: 54.43 kg

DRUGS (1)
  1. AMITRIPTYLINE [Suspect]
     Indication: SLEEP DISORDER
     Dates: start: 20130902, end: 20130910

REACTIONS (4)
  - Hypoaesthesia [None]
  - Paraesthesia [None]
  - Hallucination [None]
  - Influenza like illness [None]
